FAERS Safety Report 13833670 (Version 3)
Quarter: 2020Q3

REPORT INFORMATION
  Report Type: Report from Study
  Country: TW (occurrence: TW)
  Receive Date: 20170804
  Receipt Date: 20170919
  Transmission Date: 20201104
  Serious: Yes (Death, Hospitalization)
  Sender: FDA-Public Use
  Company Number: TW-PFIZER INC-2017333698

PATIENT
  Age: 67 Year
  Sex: Male

DRUGS (30)
  1. TREMELIMUMAB. [Suspect]
     Active Substance: TREMELIMUMAB
     Dosage: 75 MG, CYCLIC ONCE/SINGLE ADMINISTRATION (EVERY FOUR WEEKS)
     Route: 042
     Dates: start: 20161101, end: 20161101
  2. MAXIPIME [Concomitant]
     Active Substance: CEFEPIME HYDROCHLORIDE
     Indication: PYREXIA
     Dosage: 1000 MG, 2X/DAY
     Route: 042
     Dates: start: 20170206, end: 20170208
  3. KYTRIL [Concomitant]
     Active Substance: GRANISETRON HYDROCHLORIDE
     Indication: PREMEDICATION
     Dosage: 3 MG, 1X/DAY
     Route: 042
     Dates: start: 20170205, end: 20170205
  4. CISPLATIN. [Suspect]
     Active Substance: CISPLATIN
     Indication: BLADDER TRANSITIONAL CELL CARCINOMA
     Dosage: 3 CYCLES
     Route: 042
     Dates: start: 20161219
  5. ULTRACET [Concomitant]
     Active Substance: ACETAMINOPHEN\TRAMADOL HYDROCHLORIDE
     Indication: TUMOUR PAIN
     Dosage: 1 DF, 4X/DAY
     Route: 048
  6. MAGNESIUM OXIDE. [Concomitant]
     Active Substance: MAGNESIUM OXIDE
     Indication: ABDOMINAL DISTENSION
     Dosage: 250 MG, 2X/DAY
     Route: 048
  7. PARAMOL [Concomitant]
     Indication: PYREXIA
     Dosage: 500.0MG AS REQUIRED
     Route: 048
     Dates: start: 20170206, end: 20170215
  8. SILODOSIN. [Concomitant]
     Active Substance: SILODOSIN
     Indication: BENIGN PROSTATIC HYPERPLASIA
     Dosage: 4 MG, 2X/DAY
     Route: 048
  9. DIMETHICONE 350 [Concomitant]
     Indication: ABDOMINAL DISTENSION
     Dosage: 40 MG, 2X/DAY
     Route: 048
  10. LINAGLIPTIN [Concomitant]
     Active Substance: LINAGLIPTIN
     Indication: TYPE 2 DIABETES MELLITUS
     Dosage: 5 MG, 1X/DAY
     Route: 048
  11. NITROGLYCERIN. [Concomitant]
     Active Substance: NITROGLYCERIN
     Indication: CORONARY ARTERY DISEASE
     Dosage: 0.6MG AS REQUIRED
     Route: 048
  12. SMECTA [Concomitant]
     Active Substance: MONTMORILLONITE
     Indication: PROPHYLAXIS AGAINST DIARRHOEA
     Dosage: 3 G, 3X/DAY
     Route: 048
     Dates: start: 20170206, end: 20170216
  13. PARAMOL [Concomitant]
     Indication: TUMOUR PAIN
     Dosage: 500 MG, 1X/DAY
     Route: 048
     Dates: start: 20170203, end: 20170206
  14. DIPHENHYDRAMINE HYDROCHLORIDE. [Concomitant]
     Active Substance: DIPHENHYDRAMINE HYDROCHLORIDE
     Indication: PREMEDICATION
     Dosage: 30 MG, 1X/DAY
     Route: 042
     Dates: start: 20170203, end: 20170204
  15. LOPERAMIDE HYDROCHLORIDE. [Concomitant]
     Active Substance: LOPERAMIDE HYDROCHLORIDE
     Indication: DIARRHOEA
     Dosage: 2 MG, 3X/DAY
     Route: 048
     Dates: start: 20170209, end: 20170220
  16. MEGESTROL ACETATE. [Concomitant]
     Active Substance: MEGESTROL ACETATE
     Indication: PROPHYLAXIS
     Dosage: 4 MG, 1X/DAY
     Route: 048
     Dates: start: 20170207, end: 20170215
  17. BETAMETHASONE SODIUM PHOSPHATE [Concomitant]
     Active Substance: BETAMETHASONE SODIUM PHOSPHATE
     Indication: PREMEDICATION
     Dosage: 4.0MG ONCE/SINGLE ADMINISTRATION
     Route: 042
     Dates: start: 20170204, end: 20170205
  18. FAMOTIDINE. [Concomitant]
     Active Substance: FAMOTIDINE
     Indication: PREMEDICATION
     Dosage: 20 MG, 1X/DAY
     Route: 042
     Dates: start: 20170204, end: 20170204
  19. TREMELIMUMAB. [Suspect]
     Active Substance: TREMELIMUMAB
     Dosage: 75 MG, CYCLIC ONCE/SINGLE ADMINISTRATION (EVERY FOUR WEEKS)
     Route: 042
     Dates: start: 20161129, end: 20161129
  20. PROMETIN [Concomitant]
     Indication: ABDOMINAL DISTENSION
     Dosage: 5 MG, 2X/DAY
     Route: 048
  21. DICLOFENAC SODIUM. [Concomitant]
     Active Substance: DICLOFENAC SODIUM
     Indication: ABDOMINAL DISTENSION
     Dosage: 10 MG, 1X/DAY
     Route: 048
  22. NOVAMIN (PROCHLORPERAZINE) [Concomitant]
     Active Substance: PROCHLORPERAZINE
     Indication: PROPHYLAXIS OF NAUSEA AND VOMITING
     Dosage: 5 MG, 1X/DAY
     Route: 030
     Dates: start: 20170206, end: 20170206
  23. MEDI4736 [Suspect]
     Active Substance: DURVALUMAB
     Indication: BLADDER TRANSITIONAL CELL CARCINOMA
     Dosage: 1500 MG, CYCLIC ONCE/SINGLE ADMINISTRATION (EVERY FOUR WEEKS)
     Route: 042
     Dates: start: 20161004, end: 20161004
  24. MEDI4736 [Suspect]
     Active Substance: DURVALUMAB
     Dosage: 1500 MG, CYCLIC ONCE/SINGLE ADMINISTRATION (EVERY FOUR WEEKS)
     Route: 042
     Dates: start: 20161101, end: 20161101
  25. TREMELIMUMAB. [Suspect]
     Active Substance: TREMELIMUMAB
     Indication: BLADDER TRANSITIONAL CELL CARCINOMA
     Dosage: 75 MG, CYCLIC ONCE/SINGLE ADMINISTRATION (EVERY FOUR WEEKS)
     Route: 042
     Dates: start: 20161004, end: 20161004
  26. PACLITAXEL. [Suspect]
     Active Substance: PACLITAXEL
     Indication: BLADDER TRANSITIONAL CELL CARCINOMA
     Dosage: 3 CYCLES
     Route: 042
     Dates: start: 20161219
  27. MEDI4736 [Suspect]
     Active Substance: DURVALUMAB
     Dosage: 1500 MG, CYCLIC ONCE/SINGLE ADMINISTRATION (EVERY FOUR WEEKS)
     Route: 042
     Dates: start: 20161129, end: 20161129
  28. VALSARTAN. [Concomitant]
     Active Substance: VALSARTAN
     Indication: HYPERTENSION
     Dosage: 80 MG, 1X/DAY
     Route: 048
  29. ASPIRIN. [Concomitant]
     Active Substance: ASPIRIN
     Indication: CORONARY ARTERY DISEASE
     Dosage: 100 MG, 1X/DAY
     Route: 048
  30. DIPHENHYDRAMINE HYDROCHLORIDE. [Concomitant]
     Active Substance: DIPHENHYDRAMINE HYDROCHLORIDE
     Dosage: 30 MG, 1X/DAY
     Route: 042
     Dates: start: 20170216, end: 20170216

REACTIONS (1)
  - Acute kidney injury [Recovered/Resolved]

NARRATIVE: CASE EVENT DATE: 20170215
